FAERS Safety Report 5873174-3 (Version None)
Quarter: 2008Q3

REPORT INFORMATION
  Report Type: 
  Country: None (occurrence: None)
  Receive Date: 20080908
  Receipt Date: 20080828
  Transmission Date: 20090109
  Serious: Yes (Hospitalization)
  Sender: FDA-Public Use
  Company Number: JP-JNJFOC-20080802086

PATIENT
  Age: 67 Year
  Sex: Female

DRUGS (3)
  1. RISPERDAL [Suspect]
     Indication: DELIRIUM
     Route: 048
  2. TETRAMIDE [Suspect]
     Indication: DELIRIUM
     Route: 048
  3. BUFFERIN [Concomitant]
     Route: 048

REACTIONS (7)
  - ANAEMIA [None]
  - DRUG INEFFECTIVE [None]
  - HAEMORRHAGE SUBCUTANEOUS [None]
  - RED BLOOD CELL COUNT DECREASED [None]
  - RESPIRATORY RATE DECREASED [None]
  - SEDATION [None]
  - WHITE BLOOD CELL COUNT INCREASED [None]
